FAERS Safety Report 7588883-8 (Version None)
Quarter: 2011Q3

REPORT INFORMATION
  Report Type: 
  Country: None (occurrence: None)
  Receive Date: 20110705
  Receipt Date: 20110616
  Transmission Date: 20111222
  Serious: No
  Sender: FDA-Public Use
  Company Number: US-B.I. PHARMACEUTICALS,INC./RIDGEFIELD-2011-BP-14294BP

PATIENT
  Sex: Female

DRUGS (8)
  1. AVINZA [Concomitant]
  2. SYNTHROID [Concomitant]
  3. NEURONTIN [Concomitant]
     Dosage: 1800 MG
  4. PROTONIX [Concomitant]
  5. XANAX [Concomitant]
     Indication: BLADDER SPASM
  6. RESTORIL [Concomitant]
  7. PRADAXA [Suspect]
     Indication: ATRIAL FIBRILLATION
     Dosage: 300 MG
     Route: 048
     Dates: start: 20110401, end: 20110521
  8. CRESTOR [Concomitant]

REACTIONS (1)
  - BLADDER SPASM [None]
